FAERS Safety Report 4745817-9 (Version None)
Quarter: 2005Q3

REPORT INFORMATION
  Report Type: 
  Country: None (occurrence: None)
  Receive Date: 20050815
  Receipt Date: 20050815
  Transmission Date: 20060218
  Serious: Yes (Hospitalization)
  Sender: FDA-Public Use
  Company Number: None

PATIENT
  Age: 68 Year
  Sex: Male

DRUGS (6)
  1. ASPIRIN [Suspect]
     Indication: PROPHYLAXIS
     Dosage: 325MG  DAILY   ORAL
     Route: 048
     Dates: start: 20050508, end: 20050522
  2. ASPIRIN [Suspect]
     Indication: STENT OCCLUSION
     Dosage: 325MG  DAILY   ORAL
     Route: 048
     Dates: start: 20050508, end: 20050522
  3. PLAVIX [Suspect]
     Indication: PROPHYLAXIS
     Dosage: 75MG    DAILY  ORAL
     Route: 048
     Dates: start: 20050508, end: 20050622
  4. PLAVIX [Suspect]
     Indication: STENT OCCLUSION
     Dosage: 75MG    DAILY  ORAL
     Route: 048
     Dates: start: 20050508, end: 20050622
  5. LIPITOR [Concomitant]
  6. METOPROLOL [Concomitant]

REACTIONS (3)
  - ADENOCARCINOMA [None]
  - COLONIC POLYP [None]
  - RECTAL HAEMORRHAGE [None]
